FAERS Safety Report 9802214 (Version 1)
Quarter: 2014Q1

REPORT INFORMATION
  Report Type: Spontaneous
  Country: US (occurrence: US)
  Receive Date: 20140107
  Receipt Date: 20140107
  Transmission Date: 20141002
  Serious: Yes (Death)
  Sender: FDA-Public Use
  Company Number: US-BAYER-2014-001999

PATIENT
  Age: 42 Year
  Sex: Female

DRUGS (7)
  1. NAPROXEN SODIUM ({= 220 MG) [Suspect]
  2. QUETIAPINE [Suspect]
  3. BUPROPION [Suspect]
  4. FLUOXETINE [Suspect]
  5. VENLAFAXINE [Suspect]
  6. CLONAZEPAM [Suspect]
  7. LEVOTHYROXINE [Suspect]

REACTIONS (1)
  - Toxicity to various agents [Fatal]
